FAERS Safety Report 24181966 (Version 2)
Quarter: 2024Q3

REPORT INFORMATION
  Report Type: Spontaneous
  Country: US (occurrence: US)
  Receive Date: 20240807
  Receipt Date: 20240826
  Transmission Date: 20241017
  Serious: No
  Sender: MERCK
  Company Number: US-009507513-2408USA000363

PATIENT
  Age: 59 Year
  Sex: Female

DRUGS (3)
  1. MOLNUPIRAVIR [Suspect]
     Active Substance: MOLNUPIRAVIR
     Indication: COVID-19 treatment
     Dosage: 800 MG (4 CAPSULES [ALSO REPORTED AS 4 TIMES]), EVERY 12 HOURS (Q12H) (ALSO REPORTED AS 4 CAPSULES O
     Route: 048
     Dates: start: 20240729, end: 20240730
  2. TYLENOL COLD PLUS FLU SEVERE [Concomitant]
     Active Substance: ACETAMINOPHEN\DEXTROMETHORPHAN HYDROBROMIDE\GUAIFENESIN\PHENYLEPHRINE HYDROCHLORIDE
  3. LORATADINE [Concomitant]
     Active Substance: LORATADINE

REACTIONS (4)
  - Poor quality sleep [Recovered/Resolved]
  - Fatigue [Recovered/Resolved]
  - Throat tightness [Recovered/Resolved]
  - Anxiety [Recovered/Resolved]

NARRATIVE: CASE EVENT DATE: 20240729
